FAERS Safety Report 10472474 (Version 2)
Quarter: 2014Q4

REPORT INFORMATION
  Report Type: Spontaneous
  Country: US (occurrence: None)
  Receive Date: 20140922
  Receipt Date: 20141107
  Transmission Date: 20150528
  Serious: Yes (Other)
  Sender: FDA-Public Use
  Company Number: ADR-2014-01693

PATIENT
  Age: 39 Year
  Sex: Female

DRUGS (4)
  1. COMPOUNDED BACLOFEN [Suspect]
     Active Substance: BACLOFEN
     Indication: PAIN
     Dosage: 626.9 MCG/DAY
  2. BUPIVACAINE INTRATHECAL [Suspect]
     Active Substance: BUPIVACAINE
  3. SUFENTANIL [Suspect]
     Active Substance: SUFENTANIL
     Dosage: 123.6 MCG/DAY
  4. CLONIDINE. [Suspect]
     Active Substance: CLONIDINE
     Dosage: 62.6 MCG/DAY

REACTIONS (5)
  - Restlessness [None]
  - Agitation [None]
  - Pain [None]
  - Device failure [None]
  - Drug withdrawal syndrome [None]

NARRATIVE: CASE EVENT DATE: 20140911
